FAERS Safety Report 8060526-9 (Version None)
Quarter: 2012Q1

REPORT INFORMATION
  Report Type: 
  Country: None (occurrence: None)
  Receive Date: 20120120
  Receipt Date: 20120111
  Transmission Date: 20120608
  Serious: Yes (Other)
  Sender: FDA-Public Use
  Company Number: CHPA2012US001153

PATIENT
  Age: 53 Year
  Sex: Female

DRUGS (1)
  1. EXCEDRIN EXTRA STRENGTH TABLETS [Suspect]
     Indication: SINUSITIS
     Dosage: 2 DF, PRN
     Route: 048
     Dates: start: 20111101, end: 20120111

REACTIONS (6)
  - DIZZINESS [None]
  - MALAISE [None]
  - FEELING ABNORMAL [None]
  - ASTHMA [None]
  - EAR PAIN [None]
  - SOMNOLENCE [None]
